FAERS Safety Report 11570358 (Version 1)
Quarter: 2015Q3

REPORT INFORMATION
  Report Type: Spontaneous
  Country: US (occurrence: None)
  Receive Date: 20150928
  Receipt Date: 20150928
  Transmission Date: 20151125
  Serious: Yes (Other)
  Sender: FDA-Public Use
  Company Number: None

PATIENT
  Age: 47 Year
  Sex: Female
  Weight: 101.61 kg

DRUGS (1)
  1. CONTRAVE [Suspect]
     Active Substance: BUPROPION HYDROCHLORIDE\NALTREXONE HYDROCHLORIDE
     Indication: WEIGHT DECREASED
     Dosage: 2 TABS IN AM/PM
     Route: 048
     Dates: start: 20150831, end: 20150921

REACTIONS (5)
  - Pruritus [None]
  - Urticaria [None]
  - Rash [None]
  - Sensation of foreign body [None]
  - Hypersensitivity [None]

NARRATIVE: CASE EVENT DATE: 20150921
